FAERS Safety Report 5948766-3 (Version None)
Quarter: 2008Q4

REPORT INFORMATION
  Report Type: 
  Country: None (occurrence: None)
  Receive Date: 20081111
  Receipt Date: 20081105
  Transmission Date: 20090506
  Serious: Yes (Hospitalization)
  Sender: FDA-Public Use
  Company Number: IN-ELI_LILLY_AND_COMPANY-IN200810004541

PATIENT
  Age: 65 Year
  Sex: Male

DRUGS (2)
  1. HUMALOG [Suspect]
     Indication: TYPE 2 DIABETES MELLITUS
     Dosage: 8 U, IN MORNING
     Route: 058
     Dates: start: 20081016, end: 20080101
  2. ANTI-DIABETICS [Concomitant]
     Dosage: UNK, UNKNOWN
     Route: 065

REACTIONS (4)
  - BLOOD GLUCOSE INCREASED [None]
  - CARDIAC DISORDER [None]
  - DRUG INEFFECTIVE [None]
  - PLEURAL EFFUSION [None]
